FAERS Safety Report 5252573-7 (Version None)
Quarter: 2007Q1

REPORT INFORMATION
  Report Type: 
  Country: None (occurrence: None)
  Receive Date: 20070301
  Receipt Date: 20070227
  Transmission Date: 20070707
  Serious: Yes (Death, Other)
  Sender: FDA-Public Use
  Company Number: US-BAYER-200710625BWH

PATIENT
  Age: 75 Year
  Sex: Male

DRUGS (1)
  1. TRASYLOL [Suspect]
     Indication: CORONARY ARTERY BYPASS
     Route: 042

REACTIONS (2)
  - CARDIAC ARREST [None]
  - PULMONARY EMBOLISM [None]
